FAERS Safety Report 4653380-6 (Version None)
Quarter: 2005Q2

REPORT INFORMATION
  Report Type: 
  Country: None (occurrence: None)
  Receive Date: 20050504
  Receipt Date: 20050504
  Transmission Date: 20051028
  Serious: Yes (Hospitalization)
  Sender: FDA-Public Use
  Company Number: None

PATIENT
  Age: 57 Year
  Sex: Male
  Weight: 58.0604 kg

DRUGS (11)
  1. MEGACE [Suspect]
     Indication: WEIGHT DECREASED
     Dosage: 20ML (800 MG) PO QD
     Route: 048
     Dates: start: 20050308, end: 20050320
  2. MEGACE [Suspect]
     Indication: WEIGHT DECREASED
     Dosage: 20ML (800 MG) PO QD
     Route: 048
     Dates: start: 20050325
  3. FERROUS FUMERATE [Concomitant]
  4. ARANESP [Concomitant]
  5. HYDROCODONE/APAP 5 [Concomitant]
  6. MULTI-VITAMIN [Concomitant]
  7. AVASTIN [Concomitant]
  8. 5FU CONT. INF [Concomitant]
  9. OXALIPLATIN [Concomitant]
  10. LEUCOVORIN CALCIUM [Concomitant]
  11. FLUOROURACIL [Concomitant]

REACTIONS (6)
  - ABDOMINAL DISTENSION [None]
  - ABDOMINAL PAIN [None]
  - FAECAL VOLUME DECREASED [None]
  - INTESTINAL OBSTRUCTION [None]
  - NAUSEA [None]
  - STOMA SITE REACTION [None]
